FAERS Safety Report 4912767-4 (Version None)
Quarter: 2006Q1

REPORT INFORMATION
  Report Type: 
  Country: None (occurrence: None)
  Receive Date: 20060213
  Receipt Date: 20060131
  Transmission Date: 20060701
  Serious: Yes (Disabling, Other)
  Sender: FDA-Public Use
  Company Number: 2004005322

PATIENT
  Age: 55 Year
  Sex: Female
  Weight: 63 kg

DRUGS (1)
  1. ZITHROMAX [Suspect]
     Indication: SINOBRONCHITIS
     Dosage: 500 MG (DAILY), ORAL
     Route: 048
     Dates: start: 20030526, end: 20030528

REACTIONS (6)
  - AGEUSIA [None]
  - ANOSMIA [None]
  - CONVERSION DISORDER [None]
  - DRUG TOXICITY [None]
  - INJURY [None]
  - SINUSITIS [None]
